FAERS Safety Report 9009520 (Version 1)
Quarter: 2013Q1

REPORT INFORMATION
  Report Type: Spontaneous
  Country: FR (occurrence: FR)
  Receive Date: 20130110
  Receipt Date: 20130110
  Transmission Date: 20140127
  Serious: Yes (Hospitalization)
  Sender: FDA-Public Use
  Company Number: FR-GLAXOSMITHKLINE-B0855915A

PATIENT
  Age: 65 Year
  Sex: 0

DRUGS (21)
  1. ZELITREX [Suspect]
     Indication: HERPES ZOSTER
     Dosage: 1G THREE TIMES PER DAY
     Route: 048
     Dates: start: 20110716, end: 20110718
  2. KARDEGIC [Concomitant]
  3. KAYEXALATE [Concomitant]
  4. CLINUTREN [Concomitant]
  5. UVEDOSE [Concomitant]
  6. TOPALGIC (FRANCE) [Concomitant]
  7. GAVISCON [Concomitant]
  8. AMLOR [Concomitant]
  9. APROVEL [Concomitant]
  10. NEBIVOLOL HYDROCHLORIDE [Concomitant]
  11. MOTILIUM [Concomitant]
  12. ZOCOR [Concomitant]
  13. OMEPRAZOL [Concomitant]
  14. LACTULOSE [Concomitant]
  15. LEXOMIL [Concomitant]
  16. VELCADE [Concomitant]
     Indication: PLASMA CELL MYELOMA
     Dates: start: 201106
  17. DEXAMETHASONE [Concomitant]
     Indication: PLASMA CELL MYELOMA
     Dates: start: 201106
  18. VENOFER [Concomitant]
     Route: 042
  19. KABIVEN [Concomitant]
     Route: 042
  20. ARANESP [Concomitant]
     Route: 042
  21. IMOVANE [Concomitant]

REACTIONS (2)
  - Coma [Recovered/Resolved]
  - Overdose [Unknown]
